FAERS Safety Report 15606472 (Version 1)
Quarter: 2018Q4

REPORT INFORMATION
  Report Type: Spontaneous
  Country: US (occurrence: US)
  Receive Date: 20181112
  Receipt Date: 20181112
  Transmission Date: 20190205
  Serious: Yes (Hospitalization)
  Sender: FDA-Public Use
  Company Number: US-TORRENT-00007183

PATIENT
  Age: 23 Year
  Sex: Female

DRUGS (4)
  1. TOPIRAMATE. [Suspect]
     Active Substance: TOPIRAMATE
     Indication: VISUAL SNOW SYNDROME
     Dosage: UNKNOWN
  2. ONABOTULINUMTOXIN-A [Concomitant]
     Indication: VISUAL SNOW SYNDROME
     Dosage: UNKNOWN
  3. PROPRANOLOL [Concomitant]
     Active Substance: PROPRANOLOL HYDROCHLORIDE
     Indication: VISUAL SNOW SYNDROME
     Dosage: UNKNOWN
  4. AMITRIPTYLINE [Concomitant]
     Active Substance: AMITRIPTYLINE
     Indication: VISUAL SNOW SYNDROME
     Dosage: UNKNOWN

REACTIONS (1)
  - Drug ineffective [Unknown]
